FAERS Safety Report 7570414-X (Version None)
Quarter: 2011Q2

REPORT INFORMATION
  Report Type: 
  Country: None (occurrence: None)
  Receive Date: 20110622
  Receipt Date: 20110622
  Transmission Date: 20111010
  Serious: Yes (Death)
  Sender: FDA-Public Use
  Company Number: None

PATIENT
  Age: 86 Year
  Sex: Male

DRUGS (7)
  1. VITAMIN D [Concomitant]
  2. ASPIRIN [Concomitant]
  3. REVLIMID [Suspect]
     Indication: MULTIPLE MYELOMA
     Dosage: REVLIMID 5MG DAILY ORAL
     Route: 048
     Dates: start: 20110114
  4. VELCADE [Concomitant]
  5. MORPHINE [Concomitant]
  6. DEXAMETHASONE [Concomitant]
  7. VICODIN [Concomitant]

REACTIONS (4)
  - POLYURIA [None]
  - EPISTAXIS [None]
  - RESTLESSNESS [None]
  - SPEECH DISORDER [None]
